FAERS Safety Report 25086097 (Version 3)
Quarter: 2025Q3

REPORT INFORMATION
  Report Type: Spontaneous
  Country: US (occurrence: US)
  Receive Date: 20250317
  Receipt Date: 20250716
  Transmission Date: 20251021
  Serious: No
  Sender: PFIZER
  Company Number: US-PFIZER INC-202500056898

PATIENT
  Age: 75 Year
  Sex: Female

DRUGS (20)
  1. IBRANCE [Suspect]
     Active Substance: PALBOCICLIB
     Indication: Breast cancer metastatic
     Dates: start: 20250130
  2. IBRANCE [Suspect]
     Active Substance: PALBOCICLIB
     Route: 048
     Dates: start: 20250131
  3. IBRANCE [Suspect]
     Active Substance: PALBOCICLIB
     Route: 048
     Dates: start: 2025
  4. IBRANCE [Suspect]
     Active Substance: PALBOCICLIB
     Route: 048
     Dates: start: 2025
  5. IBRANCE [Suspect]
     Active Substance: PALBOCICLIB
     Route: 048
     Dates: end: 20250605
  6. IBRANCE [Suspect]
     Active Substance: PALBOCICLIB
     Route: 048
  7. ANASTROZOLE [Concomitant]
     Active Substance: ANASTROZOLE
  8. CALCIUM [Concomitant]
     Active Substance: CALCIUM
  9. CARVEDILOL [Concomitant]
     Active Substance: CARVEDILOL
  10. EMETROL [FRUCTOSE;GLUCOSE;PHOSPHORIC ACID] [Concomitant]
  11. ICOSAPENT ETHYL [Concomitant]
     Active Substance: ICOSAPENT ETHYL
  12. JARDIANCE [Concomitant]
     Active Substance: EMPAGLIFLOZIN
  13. LEVOTHYROXINE [Concomitant]
     Active Substance: LEVOTHYROXINE
  14. LOSARTAN [Concomitant]
     Active Substance: LOSARTAN
  15. NAPROXEN [Concomitant]
     Active Substance: NAPROXEN
  16. TRAMADOL [Concomitant]
     Active Substance: TRAMADOL
  17. TYLENOL ARTHRITIS PAIN [Concomitant]
     Active Substance: ACETAMINOPHEN
  18. VITAMIN B COMPLEX [Concomitant]
     Active Substance: CYANOCOBALAMIN\DEXPANTHENOL\NIACINAMIDE\PYRIDOXINE HYDROCHLORIDE\RIBOFLAVIN 5^-PHOSPHATE SODIUM\THIA
  19. VITAMIN D3 [Concomitant]
     Active Substance: CHOLECALCIFEROL
     Indication: Breast cancer metastatic
  20. XGEVA [Concomitant]
     Active Substance: DENOSUMAB

REACTIONS (12)
  - Incontinence [Not Recovered/Not Resolved]
  - Pain [Unknown]
  - Blood glucose abnormal [Recovering/Resolving]
  - Nausea [Recovering/Resolving]
  - Asthenia [Recovering/Resolving]
  - Dysphagia [Recovering/Resolving]
  - Vomiting [Recovering/Resolving]
  - White blood cell count decreased [Recovering/Resolving]
  - Red blood cell count decreased [Recovering/Resolving]
  - Erythema [Recovering/Resolving]
  - Dyspnoea [Recovering/Resolving]
  - Feeding disorder [Recovering/Resolving]

NARRATIVE: CASE EVENT DATE: 20250101
